FAERS Safety Report 9442783 (Version 1)
Quarter: 2013Q3

REPORT INFORMATION
  Report Type: Spontaneous
  Country: US (occurrence: US)
  Receive Date: 20130806
  Receipt Date: 20130806
  Transmission Date: 20140515
  Serious: No
  Sender: FDA-Public Use
  Company Number: US-ABBOTT-12P-163-0972744-00

PATIENT
  Age: 34 Year
  Sex: Female

DRUGS (8)
  1. DEPAKOTE ER [Suspect]
     Indication: PRODUCT USED FOR UNKNOWN INDICATION
     Dosage: TITRATED DOWN FROM THAT TO 1-500MG AT HOUR OF SLEEP WHEN STOPPED.
     Route: 048
     Dates: start: 2012, end: 20120813
  2. DEPAKOTE ER [Suspect]
     Dosage: 1000MG AT HOUR OF SLEEP
     Route: 048
     Dates: start: 2012, end: 2012
  3. DEPAKOTE ER [Suspect]
     Dosage: TAKING 3 ?1500MG AT HOUR OF SLEEP
     Route: 048
     Dates: end: 2012
  4. DIOZIDE [Concomitant]
     Indication: PRODUCT USED FOR UNKNOWN INDICATION
  5. MEDROL [Concomitant]
     Indication: PRODUCT USED FOR UNKNOWN INDICATION
     Dates: start: 20120814
  6. ALPRAZOLAM [Concomitant]
     Indication: PRODUCT USED FOR UNKNOWN INDICATION
     Dosage: 1-2MG EVERY NIGHT AT BEDTIME
  7. LEVOTHYROXINE [Concomitant]
     Indication: PRODUCT USED FOR UNKNOWN INDICATION
  8. PEROXITINE [Concomitant]
     Indication: PRODUCT USED FOR UNKNOWN INDICATION

REACTIONS (2)
  - Muscle twitching [Not Recovered/Not Resolved]
  - Headache [Not Recovered/Not Resolved]
